FAERS Safety Report 6214299-2 (Version None)
Quarter: 2009Q2

REPORT INFORMATION
  Report Type: 
  Country: None (occurrence: None)
  Receive Date: 20090604
  Receipt Date: 20090526
  Transmission Date: 20091009
  Serious: Yes (Hospitalization)
  Sender: FDA-Public Use
  Company Number: FR-BAYER-200826609GPV

PATIENT
  Age: 19 Year
  Sex: Female
  Weight: 55 kg

DRUGS (1)
  1. YASMIN [Suspect]
     Indication: OVARIAN CYST
     Route: 048
     Dates: start: 20040301, end: 20071001

REACTIONS (6)
  - CHEST PAIN [None]
  - DEEP VEIN THROMBOSIS [None]
  - OEDEMA PERIPHERAL [None]
  - PAIN IN EXTREMITY [None]
  - PAINFUL RESPIRATION [None]
  - PYREXIA [None]
